FAERS Safety Report 5157884-1 (Version None)
Quarter: 2006Q4

REPORT INFORMATION
  Report Type: 
  Country: None (occurrence: None)
  Receive Date: 20061127
  Receipt Date: 20050208
  Transmission Date: 20070319
  Serious: Yes (Death)
  Sender: FDA-Public Use
  Company Number: AR-ELI_LILLY_AND_COMPANY-US_0502112280

PATIENT
  Age: 67 Year
  Sex: Male
  Weight: 70.2 kg

DRUGS (11)
  1. PEMETREXED [Suspect]
     Indication: LUNG NEOPLASM MALIGNANT
     Dosage: 500 MG/M2, OTHER
     Route: 042
     Dates: start: 20050121
  2. CISPLATIN [Suspect]
     Indication: LUNG NEOPLASM MALIGNANT
     Dosage: 75 MG/M2, OTHER
     Route: 042
     Dates: start: 20050121
  3. FOLIC ACID [Concomitant]
     Indication: PROPHYLAXIS
     Dosage: 1000 UG, DAILY (1/D)
     Route: 048
     Dates: start: 20050114, end: 20050206
  4. VITAMIN B-12 [Concomitant]
     Indication: PROPHYLAXIS
     Dosage: 1000 UG, UNKNOWN
     Route: 030
     Dates: start: 20050114, end: 20050114
  5. ONDANSETRON [Concomitant]
     Indication: PROPHYLAXIS OF NAUSEA AND VOMITING
     Dosage: 8 MG, UNKNOWN
     Route: 042
     Dates: start: 20050121, end: 20050121
  6. TRAMADOL HCL [Concomitant]
     Indication: ANALGESIC THERAPY
     Dosage: 50 MG, UNKNOWN
     Dates: start: 20050114, end: 20050206
  7. ENALAPRIL MALEATE [Concomitant]
     Indication: PROPHYLAXIS
     Dosage: 2.5 MG, UNKNOWN
     Dates: start: 19940101, end: 20050206
  8. RANITIDINE [Concomitant]
     Indication: ANTACID THERAPY
     Dosage: 300 MG, UNKNOWN
     Dates: start: 20040701, end: 20050206
  9. DEXAMETHASONE 4MG TAB [Concomitant]
     Indication: PROPHYLAXIS
     Dosage: 8 MG, DAILY (1/D)
     Dates: start: 20050120, end: 20050122
  10. CODEINE [Concomitant]
     Indication: COUGH
     Dosage: 10 ML, DAILY (1/D)
     Dates: start: 20041101, end: 20050206
  11. CILOSTAZOL [Concomitant]
     Indication: VASODILATATION
     Dosage: 200 MG, DAILY (1/D)
     Route: 065
     Dates: start: 20030501, end: 20050206

REACTIONS (7)
  - BLOOD CREATININE INCREASED [None]
  - BLOOD UREA INCREASED [None]
  - DEPRESSED LEVEL OF CONSCIOUSNESS [None]
  - DRUG TOXICITY [None]
  - DYSPNOEA [None]
  - RENAL FAILURE [None]
  - RESPIRATORY DISORDER [None]
